FAERS Safety Report 6441770-0 (Version None)
Quarter: 2009Q4

REPORT INFORMATION
  Report Type: 
  Country: None (occurrence: None)
  Receive Date: 20091116
  Receipt Date: 20091116
  Transmission Date: 20100525
  Serious: Yes (Hospitalization, Other)
  Sender: FDA-Public Use
  Company Number: US-PFIZER INC-2009253101

PATIENT
  Sex: Female

DRUGS (6)
  1. DILANTIN-125 [Suspect]
     Indication: EPILEPSY
     Dosage: UNK MG, UNK
  2. LAMICTAL [Suspect]
     Indication: CONVULSION
  3. TEGRETOL [Suspect]
     Indication: EPILEPSY
  4. PRIMIDONE [Concomitant]
  5. ALPRAZOLAM [Concomitant]
  6. LORAZEPAM [Concomitant]

REACTIONS (8)
  - ANAEMIA [None]
  - ANTICONVULSANT DRUG LEVEL INCREASED [None]
  - APLASTIC ANAEMIA [None]
  - CONVULSION [None]
  - GAIT DISTURBANCE [None]
  - GAMMA-GLUTAMYLTRANSFERASE INCREASED [None]
  - HEPATITIS [None]
  - TRANSIENT ISCHAEMIC ATTACK [None]
